FAERS Safety Report 7748231-7 (Version None)
Quarter: 2011Q3

REPORT INFORMATION
  Report Type: 
  Country: None (occurrence: None)
  Receive Date: 20110913
  Receipt Date: 20110712
  Transmission Date: 20111222
  Serious: No
  Sender: FDA-Public Use
  Company Number: US-ELI_LILLY_AND_COMPANY-US201107004350

PATIENT
  Age: 45 Year
  Sex: Female

DRUGS (5)
  1. VALIUM [Concomitant]
  2. CYMBALTA [Suspect]
     Indication: MAJOR DEPRESSION
     Dosage: UNK, UNKNOWN
  3. CYMBALTA [Suspect]
     Dosage: 40 MG, UNK
  4. CYMBALTA [Suspect]
     Dosage: UNK, UNKNOWN
  5. PROZAC [Suspect]
     Indication: MAJOR DEPRESSION

REACTIONS (2)
  - DRUG INEFFECTIVE [None]
  - ASPARTATE AMINOTRANSFERASE INCREASED [None]
